FAERS Safety Report 5310574-4 (Version None)
Quarter: 2007Q1

REPORT INFORMATION
  Report Type: 
  Country: None (occurrence: None)
  Receive Date: 20070201
  Receipt Date: 20061027
  Transmission Date: 20070707
  Serious: No
  Sender: FDA-Public Use
  Company Number: 258271

PATIENT
  Age: 57 Year
  Sex: Male

DRUGS (5)
  1. LEVEMIR [Suspect]
     Indication: INSULIN-REQUIRING TYPE II DIABETES MELLITUS
     Dosage: 24 IU, QD
     Dates: start: 20060822
  2. GLIPIZIDE [Concomitant]
  3. PROMETHAZINE [Concomitant]
  4. TRAZODONE HCL [Concomitant]
  5. EFFEXOR [Concomitant]

REACTIONS (1)
  - BLOOD GLUCOSE INCREASED [None]
